FAERS Safety Report 7397987-4 (Version None)
Quarter: 2011Q2

REPORT INFORMATION
  Report Type: 
  Country: None (occurrence: None)
  Receive Date: 20110406
  Receipt Date: 20110327
  Transmission Date: 20111010
  Serious: Yes (Death, Hospitalization)
  Sender: FDA-Public Use
  Company Number: PH-BAXTER-2011BH008533

PATIENT
  Age: 64 Year
  Sex: Male

DRUGS (1)
  1. DIANEAL [Suspect]
     Indication: PERITONEAL DIALYSIS
     Route: 033
     Dates: start: 20110214

REACTIONS (3)
  - NEOPLASM MALIGNANT [None]
  - RESPIRATORY TRACT CONGESTION [None]
  - CARDIAC ARREST [None]
